FAERS Safety Report 19407953 (Version 4)
Quarter: 2021Q3

REPORT INFORMATION
  Report Type: Report from Study
  Country: US (occurrence: US)
  Receive Date: 20210611
  Receipt Date: 20210723
  Transmission Date: 20211014
  Serious: Yes (Other)
  Sender: FDA-Public Use
  Company Number: US-JAZZ-2021-US-008874

PATIENT
  Sex: Male
  Weight: 112.47 kg

DRUGS (6)
  1. ADVIL [Suspect]
     Active Substance: IBUPROFEN
     Indication: PRODUCT USED FOR UNKNOWN INDICATION
  2. XYREM [Suspect]
     Active Substance: SODIUM OXYBATE
     Dosage: 3 GRAM, BID
     Route: 048
     Dates: start: 2021
  3. DAYPRO [Suspect]
     Active Substance: OXAPROZIN
     Indication: PRODUCT USED FOR UNKNOWN INDICATION
  4. XYREM [Suspect]
     Active Substance: SODIUM OXYBATE
     Indication: HYPERSOMNIA
     Dosage: 2.25 GRAM, BID
     Route: 048
     Dates: start: 20210508, end: 2021
  5. CLONAZEPAM. [Concomitant]
     Active Substance: CLONAZEPAM
     Indication: PRODUCT USED FOR UNKNOWN INDICATION
  6. HYDROCODONE [Concomitant]
     Active Substance: HYDROCODONE
     Indication: PAIN

REACTIONS (12)
  - Parasomnia [Not Recovered/Not Resolved]
  - Seminal vesicular disorder [Recovered/Resolved]
  - Weight decreased [Unknown]
  - Food poisoning [Unknown]
  - Joint swelling [Unknown]
  - Wrong technique in product usage process [Unknown]
  - Blood pressure increased [Unknown]
  - Heart rate increased [Not Recovered/Not Resolved]
  - Condition aggravated [Not Recovered/Not Resolved]
  - Rectal haemorrhage [Recovered/Resolved]
  - Basal ganglia stroke [Unknown]
  - Off label use [Unknown]

NARRATIVE: CASE EVENT DATE: 2021
